FAERS Safety Report 6383741-9 (Version None)
Quarter: 2009Q3

REPORT INFORMATION
  Report Type: 
  Country: None (occurrence: None)
  Receive Date: 20090929
  Receipt Date: 20090929
  Transmission Date: 20100115
  Serious: Yes (Hospitalization)
  Sender: FDA-Public Use
  Company Number: None

PATIENT
  Sex: Female
  Weight: 72.1219 kg

DRUGS (1)
  1. METHIMAZOLE [Suspect]
     Indication: HYPERTHYROIDISM
     Dosage: 10MG X 2 ONCE DAILY PO
     Route: 048
     Dates: start: 20090903, end: 20090904

REACTIONS (12)
  - ASTHENIA [None]
  - BLOOD CALCIUM DECREASED [None]
  - DYSPNOEA [None]
  - FALL [None]
  - FEAR [None]
  - FEAR OF DEATH [None]
  - HEART RATE INCREASED [None]
  - MINERAL DEFICIENCY [None]
  - MOVEMENT DISORDER [None]
  - MUSCLE SPASMS [None]
  - MUSCULAR WEAKNESS [None]
  - PAIN [None]
